FAERS Safety Report 18839924 (Version 1)
Quarter: 2021Q1

REPORT INFORMATION
  Report Type: Report from Study
  Country: IT (occurrence: IT)
  Receive Date: 20210204
  Receipt Date: 20210204
  Transmission Date: 20210419
  Serious: No
  Sender: FDA-Public Use
  Company Number: IT-EXELIXIS-CABO-20034126

PATIENT
  Age: 62 Year
  Sex: Male

DRUGS (1)
  1. CABOMETYX [Suspect]
     Active Substance: CABOZANTINIB S-MALATE
     Indication: CLEAR CELL RENAL CELL CARCINOMA
     Dosage: 60 MG, QD
     Route: 048
     Dates: start: 202006

REACTIONS (6)
  - Weight decreased [Recovered/Resolved]
  - Nausea [Recovered/Resolved]
  - Skin ulcer [Recovered/Resolved]
  - Hypothyroidism [Recovered/Resolved]
  - Fatigue [Recovered/Resolved]
  - Palmar-plantar erythrodysaesthesia syndrome [Recovered/Resolved]

NARRATIVE: CASE EVENT DATE: 202007
